FAERS Safety Report 8341321-X (Version None)
Quarter: 2012Q2

REPORT INFORMATION
  Report Type: 
  Country: None (occurrence: None)
  Receive Date: 20120507
  Receipt Date: 20120429
  Transmission Date: 20120825
  Serious: Yes (Other)
  Sender: FDA-Public Use
  Company Number: US-JNJFOC-20120501518

PATIENT
  Sex: Male
  Weight: 25.86 kg

DRUGS (11)
  1. BENADRYL CHILD ALLERGY CHERRY LIQUID [Suspect]
     Indication: SNEEZING
     Dosage: 1 TEASPOON EVERY 4 TO 6 HOURS AS NEEDED
     Route: 048
     Dates: start: 20120423, end: 20120428
  2. BENADRYL CHILD ALLERGY CHERRY LIQUID [Suspect]
     Indication: RHINORRHOEA
     Dosage: 1 TEASPOON EVERY 4 TO 6 HOURS AS NEEDED
     Route: 048
     Dates: start: 20120423, end: 20120428
  3. BENADRYL CHILD ALLERGY CHERRY LIQUID [Suspect]
     Indication: EYE PRURITUS
     Dosage: 1 TEASPOON EVERY 4 TO 6 HOURS AS NEEDED
     Route: 048
     Dates: start: 20120423, end: 20120428
  4. WAL-ZYR GRAPE [Suspect]
     Indication: EYE PRURITUS
     Dosage: 1 TEASPOON
     Route: 065
     Dates: start: 20120423, end: 20120428
  5. USPECIFIED INHALER [Concomitant]
     Indication: ASTHMA
     Route: 065
  6. WAL-ZYR GRAPE [Suspect]
     Indication: RHINORRHOEA
     Dosage: 1 TEASPOON
     Route: 065
     Dates: start: 20120423, end: 20120428
  7. BENADRYL CHILD ALLERGY CHERRY LIQUID [Suspect]
     Indication: SEASONAL ALLERGY
     Dosage: 1 TEASPOON EVERY 4 TO 6 HOURS AS NEEDED
     Route: 048
     Dates: start: 20120423, end: 20120428
  8. WAL-ZYR GRAPE [Suspect]
     Indication: SEASONAL ALLERGY
     Dosage: 1 TEASPOON
     Route: 065
     Dates: start: 20120423, end: 20120428
  9. BENADRYL CHILD ALLERGY CHERRY LIQUID [Suspect]
     Indication: ASTHMA
     Dosage: 1 TEASPOON EVERY 4 TO 6 HOURS AS NEEDED
     Route: 048
     Dates: start: 20120423, end: 20120428
  10. WAL-ZYR GRAPE [Suspect]
     Indication: SNEEZING
     Dosage: 1 TEASPOON
     Route: 065
     Dates: start: 20120423, end: 20120428
  11. WAL-ZYR GRAPE [Suspect]
     Indication: ASTHMA
     Dosage: 1 TEASPOON
     Route: 065
     Dates: start: 20120423, end: 20120428

REACTIONS (3)
  - WRONG DRUG ADMINISTERED [None]
  - OFF LABEL USE [None]
  - ASTHMA [None]
